FAERS Safety Report 5352530-6 (Version None)
Quarter: 2007Q2

REPORT INFORMATION
  Report Type: 
  Country: None (occurrence: None)
  Receive Date: 20070607
  Receipt Date: 20070607
  Transmission Date: 20071010
  Serious: Yes (Other)
  Sender: FDA-Public Use
  Company Number: None

PATIENT
  Age: 63 Year
  Sex: Female
  Weight: 73.7095 kg

DRUGS (8)
  1. PHOSPHOSODA GINGER LEMON [Suspect]
     Dosage: 45 ML;X1;PO
     Route: 048
     Dates: start: 20010214, end: 20010214
  2. LIPITOR [Concomitant]
  3. ZYRTEC [Concomitant]
  4. INSULIN HUMAN [Concomitant]
  5. HUMALOG [Concomitant]
  6. PORK INSULIN [Concomitant]
  7. VALIUM [Concomitant]
  8. DEMEROL [Concomitant]

REACTIONS (5)
  - ENDOSCOPY UPPER GASTROINTESTINAL TRACT ABNORMAL [None]
  - GASTROOESOPHAGEAL REFLUX DISEASE [None]
  - HAEMATURIA [None]
  - HIATUS HERNIA [None]
  - POSTOPERATIVE RENAL FAILURE [None]
